FAERS Safety Report 6856531-8 (Version None)
Quarter: 2010Q3

REPORT INFORMATION
  Report Type: 
  Country: None (occurrence: None)
  Receive Date: 20100719
  Receipt Date: 20100707
  Transmission Date: 20110219
  Serious: Yes (Hospitalization)
  Sender: FDA-Public Use
  Company Number: AU-PFIZER INC-2010017152

PATIENT
  Age: 42 Year
  Sex: Male
  Weight: 84 kg

DRUGS (4)
  1. IDARUBICIN HCL [Suspect]
     Indication: ACUTE MYELOID LEUKAEMIA
     Dosage: 18.5 MG, DAILY, FOR THREE DAYS
     Route: 042
     Dates: start: 20091113, end: 20100127
  2. CYTARABINE [Suspect]
     Indication: ACUTE MYELOID LEUKAEMIA
     Dosage: 205 MG, DAILY, FOR FIVE DAYS
     Route: 042
     Dates: start: 20091113, end: 20100120
  3. ETOPOSIDE [Suspect]
     Indication: ACUTE MYELOID LEUKAEMIA
     Dosage: 153.8 MG, DAILY, FOR FIVE DAYS
     Route: 042
     Dates: start: 20091113, end: 20100129
  4. GRANULOCYTE COLONY STIMULATING FACTOR [Suspect]
     Indication: HAEMATOPOIETIC STEM CELL MOBILISATION
     Dosage: 480 UG, 1X/DAY
     Route: 058
     Dates: start: 20100131

REACTIONS (1)
  - CLOSTRIDIAL INFECTION [None]
